FAERS Safety Report 9625746 (Version 8)
Quarter: 2014Q3

REPORT INFORMATION
  Report Type: Report from Study
  Country: DE (occurrence: DE)
  Receive Date: 20131016
  Receipt Date: 20140804
  Transmission Date: 20150326
  Serious: Yes (Hospitalization)
  Sender: FDA-Public Use
  Company Number: DE-UCBSA-100258

PATIENT
  Sex: Female
  Weight: 90 kg

DRUGS (13)
  1. CERTOLIZUMAB PEGOL RA [Suspect]
     Active Substance: CERTOLIZUMAB PEGOL
     Dosage: 200 MG, EV 2 WEEKS(QOW)
     Route: 058
     Dates: start: 2013, end: 201308
  2. MELOXICAM. [Concomitant]
     Active Substance: MELOXICAM
     Indication: RHEUMATOID ARTHRITIS
     Dosage: 15 MG AS NEEDED
     Route: 048
     Dates: start: 200910, end: 20130730
  3. HEPARIN [Concomitant]
     Active Substance: HEPARIN SODIUM
  4. CERTOLIZUMAB PEGOL RA [Suspect]
     Active Substance: CERTOLIZUMAB PEGOL
     Indication: RHEUMATOID ARTHRITIS
     Dosage: 200 MG, UNK
     Route: 058
     Dates: start: 20120426, end: 20130720
  5. METHOTREXATE [Suspect]
     Active Substance: METHOTREXATE
     Indication: RHEUMATOID ARTHRITIS
     Dosage: QS
     Route: 048
     Dates: start: 200910, end: 20130730
  6. OMEPRAZOLE. [Concomitant]
     Active Substance: OMEPRAZOLE
     Dosage: 20 MG, ONCE DAILY (QD)
     Dates: start: 20130804
  7. IBUPROFEN. [Concomitant]
     Active Substance: IBUPROFEN
     Indication: RHEUMATOID ARTHRITIS
     Dosage: 600 MG AS NEEDED
     Route: 048
     Dates: start: 20090518, end: 20130730
  8. DICLOFENAC [Concomitant]
     Active Substance: DICLOFENAC
     Indication: RHEUMATOID ARTHRITIS
     Dosage: 50MG PRN
     Route: 048
     Dates: start: 20130730, end: 20140120
  9. MONO-EMBOLEX [Concomitant]
     Active Substance: CERTOPARIN SODIUM
     Dosage: 3000 IU, ONCE DAILY (QD)
     Route: 058
     Dates: start: 20130804
  10. FOLIC ACID. [Concomitant]
     Active Substance: FOLIC ACID
     Indication: DRUG TOLERANCE
     Dosage: QS
     Route: 048
     Dates: start: 200910, end: 20130730
  11. PARACETAMOL [Concomitant]
     Active Substance: ACETAMINOPHEN
     Dosage: UNK
     Dates: start: 2013
  12. UNACID PD [Concomitant]
     Dosage: UNK UNK, 2X/DAY (BID)
     Route: 048
     Dates: start: 20130731
  13. NOVALGIN [Concomitant]
     Active Substance: METAMIZOLE SODIUM
     Dosage: UNK
     Dates: start: 2013

REACTIONS (4)
  - Impaired healing [Recovered/Resolved]
  - Cellulitis [Recovered/Resolved]
  - Laceration [Recovered/Resolved]
  - Abscess [Recovered/Resolved]

NARRATIVE: CASE EVENT DATE: 20130731
